FAERS Safety Report 8049328-7 (Version None)
Quarter: 2012Q1

REPORT INFORMATION
  Report Type: 
  Country: None (occurrence: None)
  Receive Date: 20120117
  Receipt Date: 20120111
  Transmission Date: 20120608
  Serious: Yes (Life-Threatening)
  Sender: FDA-Public Use
  Company Number: JP-ROCHE-760646

PATIENT
  Sex: Male
  Weight: 90 kg

DRUGS (9)
  1. ACTEMRA [Suspect]
     Indication: RHEUMATOID ARTHRITIS
     Route: 041
     Dates: start: 20110112, end: 20110112
  2. PREDNISOLONE [Suspect]
     Indication: RHEUMATOID ARTHRITIS
     Dosage: FORM: PEORAL AGENT.
     Route: 048
  3. ACTEMRA [Suspect]
     Route: 041
     Dates: start: 20110315, end: 20110315
  4. URALYT-U [Concomitant]
     Dosage: DOSAGE IS UNCERTAIN
     Route: 048
  5. VOLTAREN [Suspect]
     Indication: PRODUCT USED FOR UNKNOWN INDICATION
     Route: 054
  6. NORVASC [Concomitant]
     Dosage: DOSAGE IS UNCERTAIN
     Route: 048
  7. METHOTREXATE [Concomitant]
     Indication: RHEUMATOID ARTHRITIS
     Dosage: FORM: PEORAL AGENT.
     Route: 048
  8. ALLOPURINOL [Concomitant]
     Dosage: DOSAGE IS UNCERTAIN
     Route: 048
  9. FAMOTIDINE [Concomitant]
     Dosage: DOSAGE IS UNCERTAIN
     Route: 048

REACTIONS (5)
  - ACUTE RESPIRATORY DISTRESS SYNDROME [None]
  - DIVERTICULAR PERFORATION [None]
  - ILEUS PARALYTIC [None]
  - INFECTIOUS PERITONITIS [None]
  - SYSTEMIC INFLAMMATORY RESPONSE SYNDROME [None]
